FAERS Safety Report 20120966 (Version 1)
Quarter: 2021Q4

REPORT INFORMATION
  Report Type: Spontaneous
  Country: US (occurrence: None)
  Receive Date: 20211127
  Receipt Date: 20211127
  Transmission Date: 20220303
  Serious: Yes (Hospitalization)
  Sender: FDA-Public Use
  Company Number: US-ROCHE-2967428

PATIENT
  Age: 57 Year
  Sex: Female

DRUGS (1)
  1. ACTEMRA [Suspect]
     Active Substance: TOCILIZUMAB
     Indication: Rheumatoid arthritis
     Route: 058
     Dates: start: 20181106

REACTIONS (3)
  - Cellulitis [Recovering/Resolving]
  - Dyspnoea [Recovering/Resolving]
  - Animal bite [Recovering/Resolving]

NARRATIVE: CASE EVENT DATE: 20210815
